FAERS Safety Report 10606070 (Version 1)
Quarter: 2014Q4

REPORT INFORMATION
  Report Type: Report from Study
  Country: CN (occurrence: CN)
  Receive Date: 20141125
  Receipt Date: 20141125
  Transmission Date: 20150529
  Serious: Yes (Death, Hospitalization)
  Sender: FDA-Public Use
  Company Number: CN-ACTELION-A-CH2014-108285

PATIENT
  Age: 51 Year
  Sex: Male

DRUGS (2)
  1. VENTAVIS [Suspect]
     Active Substance: ILOPROST
     Indication: PULMONARY ARTERIAL HYPERTENSION
     Dosage: FREQUENCY: 6-9 TIMES A DAY
     Route: 055
  2. SILDENAFIL. [Concomitant]
     Active Substance: SILDENAFIL

REACTIONS (10)
  - Death [Fatal]
  - Lung infection [Unknown]
  - Chest discomfort [Unknown]
  - Nasopharyngitis [Unknown]
  - Erythema [Unknown]
  - Rhinalgia [Unknown]
  - Blood pressure increased [Unknown]
  - Pneumonitis [Unknown]
  - Dyspnoea [Unknown]
  - Drug ineffective [Unknown]

NARRATIVE: CASE EVENT DATE: 201006
